FAERS Safety Report 4546516-9 (Version None)
Quarter: 2005Q1

REPORT INFORMATION
  Report Type: 
  Country: None (occurrence: None)
  Receive Date: 20050106
  Receipt Date: 20040603
  Transmission Date: 20050727
  Serious: Yes (Life-Threatening)
  Sender: FDA-Public Use
  Company Number: FR-GLAXOSMITHKLINE-B0334598A

PATIENT
  Age: 36 Year
  Sex: Female
  Weight: 78 kg

DRUGS (4)
  1. CLAMOXYL [Suspect]
     Indication: INFECTION PROPHYLAXIS
     Route: 050
     Dates: start: 20040401, end: 20040401
  2. SYNTOCINON [Concomitant]
     Indication: UTERINE CONTRACTIONS ABNORMAL
     Route: 065
     Dates: start: 20040430, end: 20040430
  3. SALBUMOL [Concomitant]
     Dosage: .25MG SINGLE DOSE
     Route: 030
     Dates: start: 20040430, end: 20040430
  4. NUBAIN [Concomitant]
     Dosage: 10MG SINGLE DOSE
     Route: 030
     Dates: start: 20040430, end: 20040430

REACTIONS (10)
  - CIRCULATORY COLLAPSE [None]
  - DRUG HYPERSENSITIVITY [None]
  - ERYTHEMA [None]
  - FACE OEDEMA [None]
  - HYPERSENSITIVITY [None]
  - HYPOTENSION [None]
  - ILL-DEFINED DISORDER [None]
  - LARYNGEAL OEDEMA [None]
  - MALAISE [None]
  - PREMATURE RUPTURE OF MEMBRANES [None]
